FAERS Safety Report 8812005 (Version 7)
Quarter: 2016Q1

REPORT INFORMATION
  Report Type: Report from Study
  Country: DE (occurrence: DE)
  Receive Date: 20120927
  Receipt Date: 20160325
  Transmission Date: 20160526
  Serious: Yes (Hospitalization)
  Sender: FDA-Public Use
  Company Number: DE-ROCHE-1129683

PATIENT
  Age: 67 Year
  Sex: Male
  Weight: 77 kg

DRUGS (42)
  1. TIOTROPIUM BROMIDE [Concomitant]
     Active Substance: TIOTROPIUM BROMIDE
     Indication: PULMONARY SARCOIDOSIS
     Route: 048
     Dates: start: 201112
  2. EXFORGE [Concomitant]
     Active Substance: AMLODIPINE BESYLATE\VALSARTAN
     Indication: HYPERTENSION
     Route: 048
     Dates: start: 2000
  3. ARCOXIA [Concomitant]
     Active Substance: ETORICOXIB
     Indication: RHEUMATOID ARTHRITIS
     Route: 048
     Dates: start: 20120621, end: 20120913
  4. ALENDRONAT [Concomitant]
     Active Substance: ALENDRONATE SODIUM
     Indication: OSTEOPOROSIS
     Route: 048
     Dates: start: 20120914
  5. PANTOZOL [Concomitant]
     Active Substance: PANTOPRAZOLE SODIUM
     Route: 048
     Dates: start: 20130215
  6. CARBOSTESIN [Concomitant]
     Active Substance: BUPIVACAINE HYDROCHLORIDE
     Indication: RHEUMATOID ARTHRITIS
     Dosage: SINGLE DOSE
     Route: 014
     Dates: start: 20120515, end: 20120515
  7. VOLON A [Concomitant]
     Dosage: SINGLE DOSE
     Route: 014
     Dates: start: 20120516, end: 20120516
  8. LEDERLON [Concomitant]
     Active Substance: TRIAMCINOLONE HEXACETONIDE
     Dosage: SINGLE DOSE
     Route: 014
     Dates: start: 20120516, end: 20120516
  9. SYMBICORT [Concomitant]
     Active Substance: BUDESONIDE\FORMOTEROL FUMARATE DIHYDRATE
     Indication: PULMONARY SARCOIDOSIS
     Dosage: 320
     Route: 065
     Dates: start: 20130215
  10. VALSARTAN. [Concomitant]
     Active Substance: VALSARTAN
     Route: 048
     Dates: start: 20130215
  11. IBUHEXAL [Concomitant]
     Active Substance: IBUPROFEN
     Indication: RHEUMATOID ARTHRITIS
     Route: 048
     Dates: start: 20120509, end: 20120521
  12. CARBOSTESIN [Concomitant]
     Active Substance: BUPIVACAINE HYDROCHLORIDE
     Dosage: SINGLE DOSE
     Route: 014
     Dates: start: 20120516, end: 20120516
  13. VOLON A [Concomitant]
     Dosage: SINGLE DOSE
     Route: 014
     Dates: start: 20120518, end: 20120518
  14. LEDERLON [Concomitant]
     Active Substance: TRIAMCINOLONE HEXACETONIDE
     Indication: RHEUMATOID ARTHRITIS
     Dosage: SINGLE DOSE
     Route: 014
     Dates: start: 20120515, end: 20120515
  15. TRIAMTEREN [Concomitant]
     Active Substance: TRIAMTERENE
     Indication: HYPERTENSION
     Route: 048
     Dates: start: 20130215
  16. LERCANIDIPINE [Concomitant]
     Active Substance: LERCANIDIPINE
     Indication: HYPERTENSION
     Route: 048
     Dates: start: 2000
  17. PREDNISOLON [Concomitant]
     Active Substance: PREDNISOLONE
     Route: 048
     Dates: start: 20120510, end: 20120520
  18. AMLODIPIN [Concomitant]
     Active Substance: AMLODIPINE BESYLATE
     Indication: HYPERTENSION
     Route: 048
     Dates: start: 20130215
  19. VALSARTAN. [Concomitant]
     Active Substance: VALSARTAN
     Indication: HYPERTENSION
     Route: 048
     Dates: start: 2000, end: 20130214
  20. HYDROCHLOROTHIAZIDE. [Concomitant]
     Active Substance: HYDROCHLOROTHIAZIDE
     Indication: HYPERTENSION
     Route: 065
     Dates: start: 2000
  21. METHOTREXATE [Concomitant]
     Active Substance: METHOTREXATE
     Indication: RHEUMATOID ARTHRITIS
     Route: 058
     Dates: start: 201112
  22. TAUREDON [Concomitant]
     Indication: RHEUMATOID ARTHRITIS
     Route: 030
     Dates: start: 201112, end: 20120511
  23. PARACETAMOL [Concomitant]
     Active Substance: ACETAMINOPHEN
     Indication: RHEUMATOID ARTHRITIS
     Route: 048
     Dates: start: 20120509, end: 201209
  24. CARBOSTESIN [Concomitant]
     Active Substance: BUPIVACAINE HYDROCHLORIDE
     Dosage: SINGLE DOSE
     Route: 014
     Dates: start: 20120518, end: 20120518
  25. LANTUS [Concomitant]
     Active Substance: INSULIN GLARGINE
     Indication: DIABETES MELLITUS
     Dosage: DOSE: 10 UNITS
     Route: 058
     Dates: start: 20130131
  26. FENOTEROL [Concomitant]
     Active Substance: FENOTEROL
     Indication: PULMONARY SARCOIDOSIS
     Dosage: 1 SPRAY, AS NEEDED
     Route: 048
     Dates: start: 20130215
  27. CANESTEN [Concomitant]
     Active Substance: CLOTRIMAZOLE
     Route: 062
     Dates: start: 20130215
  28. FOLSAN [Concomitant]
     Active Substance: FOLIC ACID
     Route: 048
     Dates: start: 201112
  29. IBUHEXAL [Concomitant]
     Active Substance: IBUPROFEN
     Route: 048
     Dates: start: 20120522, end: 20120524
  30. TOCILIZUMAB [Suspect]
     Active Substance: TOCILIZUMAB
     Indication: RHEUMATOID ARTHRITIS
     Dosage: LAST DOSE PRIOR TO SAE 16 AUG 2012
     Route: 042
     Dates: start: 20120523
  31. FENTANYL. [Concomitant]
     Active Substance: FENTANYL
     Indication: PULMONARY SARCOIDOSIS
     Route: 062
     Dates: start: 20130215
  32. HYDROCHLOROTHIAZIDE. [Concomitant]
     Active Substance: HYDROCHLOROTHIAZIDE
     Route: 048
     Dates: start: 20130215
  33. PREDNISOLON [Concomitant]
     Active Substance: PREDNISOLONE
     Route: 048
     Dates: start: 20120521
  34. SALBUTAMOL [Concomitant]
     Active Substance: ALBUTEROL
     Indication: PULMONARY SARCOIDOSIS
     Route: 065
     Dates: start: 201112
  35. NEBILET [Concomitant]
     Active Substance: NEBIVOLOL
     Indication: HYPERTENSION
     Route: 065
     Dates: start: 20120518
  36. VOLON A [Concomitant]
     Indication: RHEUMATOID ARTHRITIS
     Dosage: SINGLE DOSE
     Route: 014
     Dates: start: 20120515, end: 20120515
  37. COLECALCIFEROL [Concomitant]
     Active Substance: CHOLECALCIFEROL
     Indication: OSTEOPOROSIS
     Dosage: DOSE: 20000
     Route: 048
     Dates: start: 201112, end: 20120913
  38. PANTOZOL [Concomitant]
     Active Substance: PANTOPRAZOLE SODIUM
     Indication: BARRETT^S OESOPHAGUS
     Route: 048
     Dates: start: 201112, end: 20130214
  39. PREDNISOLON [Concomitant]
     Active Substance: PREDNISOLONE
     Indication: RHEUMATOID ARTHRITIS
     Route: 048
     Dates: start: 201201, end: 20120509
  40. LEDERLON [Concomitant]
     Active Substance: TRIAMCINOLONE HEXACETONIDE
     Dosage: SINGLE DOSE
     Route: 014
     Dates: start: 20120518, end: 20120518
  41. VIGANTOLETTEN [Concomitant]
     Active Substance: CHOLECALCIFEROL
     Indication: OSTEOPOROSIS
     Dosage: DOSE: 1000 UNITS
     Route: 048
     Dates: start: 20120914
  42. TRIAMCINOLON ACETONID [Concomitant]
     Indication: RHEUMATOID ARTHRITIS
     Dosage: SINGLE DOSE
     Route: 013
     Dates: start: 20120913, end: 20120913

REACTIONS (2)
  - Rheumatoid arthritis [Recovered/Resolved]
  - Rheumatoid arthritis [Recovered/Resolved]

NARRATIVE: CASE EVENT DATE: 20120830
